FAERS Safety Report 9218209 (Version 2)
Quarter: 2013Q2

REPORT INFORMATION
  Report Type: Report from Study
  Country: US (occurrence: US)
  Receive Date: 20130408
  Receipt Date: 20130418
  Transmission Date: 20140414
  Serious: Yes (Hospitalization, Other)
  Sender: FDA-Public Use
  Company Number: US-ABBOTT-13P-163-1070886-00

PATIENT
  Age: 58 Year
  Sex: Male

DRUGS (2)
  1. HUMIRA [Suspect]
     Indication: ANKYLOSING SPONDYLITIS
     Dates: start: 20120806
  2. AMBIEN [Concomitant]
     Indication: INSOMNIA
     Dosage: AT BEDTIME

REACTIONS (2)
  - Arthropathy [Recovered/Resolved]
  - Arthralgia [Unknown]
